FAERS Safety Report 6966868-X (Version None)
Quarter: 2010Q3

REPORT INFORMATION
  Report Type: 
  Country: None (occurrence: None)
  Receive Date: 20100906
  Receipt Date: 20100827
  Transmission Date: 20110219
  Serious: Yes (Other)
  Sender: FDA-Public Use
  Company Number: PHHY2010US53250

PATIENT
  Sex: Female

DRUGS (6)
  1. EXTAVIA [Suspect]
     Indication: MULTIPLE SCLEROSIS
     Dosage: 0.25 MG, QOD
     Route: 058
     Dates: start: 20100322
  2. SYNTHROID [Concomitant]
     Dosage: 125 UG, QD
  3. CYMBALTA [Concomitant]
     Dosage: 60 MG, BID
  4. LYRICA [Concomitant]
     Dosage: 100 MG, PRN
  5. ZANAFLEX [Concomitant]
     Dosage: 4 MG, TID
  6. ACETAMINOPHEN [Concomitant]
     Dosage: 500 MG, PRN

REACTIONS (4)
  - DIPLOPIA [None]
  - FAECAL INCONTINENCE [None]
  - MUSCULAR WEAKNESS [None]
  - URINARY INCONTINENCE [None]
